FAERS Safety Report 4618020-0 (Version None)
Quarter: 2005Q1

REPORT INFORMATION
  Report Type: 
  Country: None (occurrence: None)
  Receive Date: 20050322
  Receipt Date: 20050307
  Transmission Date: 20050727
  Serious: Yes (Hospitalization)
  Sender: FDA-Public Use
  Company Number: 05-145

PATIENT
  Age: 10 Month
  Sex: Female

DRUGS (6)
  1. IBUPROFEN [Suspect]
     Indication: PYREXIA
     Dosage: 360 MG
  2. N-ACETYL-P-AMINOPHENOL (APAP) (PARACETAMOL) [Suspect]
     Indication: PYREXIA
     Dosage: 750 MG, 1000 MG
  3. N-ACETYL-P-AMINOPHENOL (APAP) (PARACETAMOL) [Suspect]
     Indication: PYREXIA
     Dosage: 750 MG, 1000 MG
  4. KETOPROFEN [Suspect]
     Indication: PYREXIA
     Dosage: 50 MG, 25 MG, INTRAVENOUS
     Route: 042
  5. KETOPROFEN [Suspect]
     Indication: PYREXIA
     Dosage: 50 MG, 25 MG, INTRAVENOUS
     Route: 042
  6. ANTIPYRETICES (OTHER ANALGESICS AND ANTIPYRETICS) [Concomitant]

REACTIONS (10)
  - BLOOD LACTIC ACID INCREASED [None]
  - DECREASED ACTIVITY [None]
  - HEPATIC NECROSIS [None]
  - HEPATOMEGALY [None]
  - LETHARGY [None]
  - LYMPHOCYTIC INFILTRATION [None]
  - METABOLIC DISORDER [None]
  - PYREXIA [None]
  - TACHYPNOEA [None]
  - VOMITING [None]
